FAERS Safety Report 16465973 (Version 3)
Quarter: 2019Q3

REPORT INFORMATION
  Report Type: Spontaneous
  Country: GT (occurrence: GT)
  Receive Date: 20190621
  Receipt Date: 20190716
  Transmission Date: 20191004
  Serious: Yes (Death, Hospitalization, Other)
  Sender: FDA-Public Use
  Company Number: GT-009507513-1906GTM008660

PATIENT
  Age: 70 Year
  Sex: Female

DRUGS (2)
  1. KEYTRUDA [Suspect]
     Active Substance: PEMBROLIZUMAB
     Indication: RENAL CANCER
  2. KEYTRUDA [Suspect]
     Active Substance: PEMBROLIZUMAB
     Indication: BLADDER TRANSITIONAL CELL CARCINOMA
     Dosage: FIFTH CYCLE, CYCLICAL

REACTIONS (7)
  - Death [Fatal]
  - Encephalopathy [Recovered/Resolved]
  - Therapy partial responder [Not Recovered/Not Resolved]
  - Encephalitis [Recovered/Resolved]
  - Product use in unapproved indication [Unknown]
  - Immune-mediated adverse reaction [Not Recovered/Not Resolved]
  - Leukocytosis [Not Recovered/Not Resolved]

NARRATIVE: CASE EVENT DATE: 2019
